FAERS Safety Report 21127897 (Version 1)
Quarter: 2022Q3

REPORT INFORMATION
  Report Type: Spontaneous
  Country: US (occurrence: US)
  Receive Date: 20220725
  Receipt Date: 20220725
  Transmission Date: 20221026
  Serious: No
  Sender: FDA-Public Use
  Company Number: US-ABBVIE-22K-163-4372113-00

PATIENT
  Sex: Female

DRUGS (3)
  1. SYNTHROID [Suspect]
     Active Substance: LEVOTHYROXINE SODIUM
     Indication: Product used for unknown indication
     Route: 048
  2. LEVOTHYROXINE [Suspect]
     Active Substance: LEVOTHYROXINE
     Indication: Product used for unknown indication
     Dosage: 0.88 EVERY MORNING
     Route: 065
  3. SODIUM IODIDE I-131 [Suspect]
     Active Substance: SODIUM IODIDE I-131
     Indication: Product used for unknown indication
     Route: 065

REACTIONS (8)
  - Loss of personal independence in daily activities [Unknown]
  - Mobility decreased [Unknown]
  - Feeling abnormal [Unknown]
  - Heart rate increased [Unknown]
  - Thyroid disorder [Unknown]
  - Drug ineffective [Unknown]
  - Weight decreased [Unknown]
  - Hyperthyroidism [Unknown]
